FAERS Safety Report 6272541-6 (Version None)
Quarter: 2009Q3

REPORT INFORMATION
  Report Type: 
  Country: None (occurrence: None)
  Receive Date: 20090717
  Receipt Date: 20090706
  Transmission Date: 20100115
  Serious: Yes (Other)
  Sender: FDA-Public Use
  Company Number: PHHY2009AU27390

PATIENT
  Sex: Male

DRUGS (2)
  1. RITALIN [Suspect]
     Indication: PAIN
     Dosage: 4 DF, QD
     Route: 048
  2. RITALIN [Suspect]
     Dosage: 2.5 DF, UNK
     Route: 048

REACTIONS (5)
  - BLEPHAROSPASM [None]
  - DEPRESSED MOOD [None]
  - DYSTONIA [None]
  - TORTICOLLIS [None]
  - WITHDRAWAL SYNDROME [None]
